FAERS Safety Report 18690045 (Version 1)
Quarter: 2020Q4

REPORT INFORMATION
  Report Type: Spontaneous
  Country: US (occurrence: US)
  Receive Date: 20201231
  Receipt Date: 20201231
  Transmission Date: 20210114
  Serious: Yes (Other)
  Sender: FDA-Public Use
  Company Number: US-PURDUE-USA-2020-0158238

PATIENT

DRUGS (1)
  1. OXYCODONE HCL TABLETS (RHODES 91-490) [Suspect]
     Active Substance: OXYCODONE HYDROCHLORIDE
     Indication: INJURY
     Dosage: 30 MG, QID
     Route: 048

REACTIONS (7)
  - Insomnia [Unknown]
  - Cardiac disorder [Unknown]
  - Drug dependence [Unknown]
  - Drug tolerance increased [Unknown]
  - Product prescribing issue [Unknown]
  - Withdrawal syndrome [Unknown]
  - Liver disorder [Unknown]
